APPROVED DRUG PRODUCT: SODIUM FLUORIDE F-18
Active Ingredient: SODIUM FLUORIDE F-18
Strength: 20-600mCi/ML
Dosage Form/Route: INJECTABLE;INTRAVENOUS
Application: A204328 | Product #001
Applicant: THE FEINSTEIN INSTITUTE FOR MEDICAL RESEARCH
Approved: Nov 19, 2014 | RLD: No | RS: No | Type: RX